FAERS Safety Report 4896692-3 (Version None)
Quarter: 2006Q1

REPORT INFORMATION
  Report Type: 
  Country: None (occurrence: None)
  Receive Date: 20060131
  Receipt Date: 20060119
  Transmission Date: 20060701
  Serious: Yes (Death)
  Sender: FDA-Public Use
  Company Number: FR-JNJFOC-20060103865

PATIENT
  Age: 94 Year
  Sex: Female

DRUGS (2)
  1. REMINYL [Suspect]
     Indication: DRUG USE FOR UNKNOWN INDICATION
     Route: 048
  2. ATHYMIL [Concomitant]
     Route: 065

REACTIONS (1)
  - DEATH [None]
